FAERS Safety Report 15397870 (Version 1)
Quarter: 2018Q3

REPORT INFORMATION
  Report Type: Spontaneous
  Country: US (occurrence: US)
  Receive Date: 20180913
  Receipt Date: 20180913
  Transmission Date: 20181010
  Serious: No
  Sender: FDA-Public Use
  Company Number: None

PATIENT
  Age: 45 Year
  Sex: Female

DRUGS (1)
  1. TALTZ [Suspect]
     Active Substance: IXEKIZUMAB
     Indication: PSORIASIS
     Dosage: INJECT 80MG (1 PEN) SUBCUTANEOUSLY AT WEEK   12 THEN EVERY 4  WEEKS   AS DIRECTED
     Route: 058
     Dates: start: 201806

REACTIONS (4)
  - Injection site warmth [None]
  - Injection site erythema [None]
  - Injection site swelling [None]
  - Injection site reaction [None]
